FAERS Safety Report 8268671-X (Version None)
Quarter: 2012Q2

REPORT INFORMATION
  Report Type: 
  Country: None (occurrence: None)
  Receive Date: 20120409
  Receipt Date: 20120403
  Transmission Date: 20120825
  Serious: Yes (Life-Threatening, Hospitalization, Other)
  Sender: FDA-Public Use
  Company Number: JP-ROCHE-720055

PATIENT
  Sex: Female

DRUGS (15)
  1. ACTEMRA [Suspect]
     Indication: RHEUMATOID ARTHRITIS
     Dosage: ROUTE: INTRAVENOUS DRIP
     Route: 041
     Dates: start: 20090918, end: 20090918
  2. ACTEMRA [Suspect]
     Dosage: ROUTE: INTRAVENOUS DRIP
     Route: 041
     Dates: start: 20100115, end: 20100115
  3. CELECOXIB [Concomitant]
     Route: 048
  4. BISOPROLOL FUMARATE [Concomitant]
     Route: 048
  5. ACTEMRA [Suspect]
     Dosage: ROUTE: INTRAVENOUS DRIP
     Route: 041
     Dates: start: 20091113, end: 20091113
  6. METHOTREXATE [Suspect]
     Dosage: DOSE FORM: PERORAL AGENT
     Route: 048
     Dates: start: 20090908, end: 20100728
  7. ACTEMRA [Suspect]
     Dosage: ROUTE: INTRAVENOUS DRIP
     Route: 041
     Dates: start: 20091016, end: 20091016
  8. ACTEMRA [Suspect]
     Route: 041
     Dates: start: 20100409, end: 20100728
  9. METHOTREXATE [Suspect]
     Indication: RHEUMATOID ARTHRITIS
     Dosage: DOSE FORM: PERORAL AGENT
     Route: 048
  10. ONEALFA [Concomitant]
     Route: 048
  11. ACTEMRA [Suspect]
     Route: 041
     Dates: start: 20091211, end: 20091211
  12. PREDNISOLONE [Suspect]
     Indication: RHEUMATOID ARTHRITIS
     Dosage: FORM: PERORAL AGENT
     Route: 048
  13. ALENDRONATE SODIUM [Concomitant]
     Route: 048
  14. FOLIC ACID [Concomitant]
     Route: 048
  15. OMEPRAZOLE [Concomitant]
     Route: 048

REACTIONS (5)
  - PNEUMOCYSTIS JIROVECI PNEUMONIA [None]
  - PANCYTOPENIA [None]
  - RENAL FAILURE [None]
  - PNEUMONIA CRYPTOCOCCAL [None]
  - NAUSEA [None]
